FAERS Safety Report 9157431 (Version 4)
Quarter: 2013Q2

REPORT INFORMATION
  Report Type: Spontaneous
  Country: JP (occurrence: JP)
  Receive Date: 20130312
  Receipt Date: 20130424
  Transmission Date: 20140414
  Serious: Yes (Other)
  Sender: FDA-Public Use
  Company Number: JP-SANOFI-AVENTIS-2013SA023845

PATIENT
  Age: 81 Year
  Sex: Male

DRUGS (4)
  1. MYSLEE [Suspect]
     Indication: PRODUCT USED FOR UNKNOWN INDICATION
     Route: 048
     Dates: start: 2003
  2. LENDORMIN [Suspect]
     Indication: PRODUCT USED FOR UNKNOWN INDICATION
     Route: 048
  3. ANTIBIOTICS [Concomitant]
     Dates: start: 201211
  4. PARACETAMOL [Concomitant]
     Indication: ANALGESIC THERAPY
     Dates: start: 201211

REACTIONS (4)
  - Haemorrhage [Unknown]
  - Parkinsonism [Unknown]
  - Dizziness [Unknown]
  - Fall [Unknown]
